FAERS Safety Report 17453668 (Version 1)
Quarter: 2020Q1

REPORT INFORMATION
  Report Type: Spontaneous
  Country: US (occurrence: US)
  Receive Date: 20200224
  Receipt Date: 20200224
  Transmission Date: 20200409
  Serious: No
  Sender: FDA-Public Use
  Company Number: US-VYERA PHARMACEUTICALS, LLC-2019VYE00050

PATIENT
  Age: 42 Year
  Sex: Male
  Weight: 95.24 kg

DRUGS (12)
  1. DARAPRIM [Suspect]
     Active Substance: PYRIMETHAMINE
     Dosage: 50 MG (2 TABLETS), 1X/DAY
     Route: 048
     Dates: start: 20190925
  2. AXIRON [Concomitant]
     Active Substance: TESTOSTERONE
     Route: 061
  3. RITALIN [Concomitant]
     Active Substance: METHYLPHENIDATE HYDROCHLORIDE
  4. LEUCOVORIN. [Concomitant]
     Active Substance: LEUCOVORIN
  5. CLINDAMYCIN. [Suspect]
     Active Substance: CLINDAMYCIN
  6. LIOTHYRONINE [Concomitant]
     Active Substance: LIOTHYRONINE
  7. DARAPRIM [Suspect]
     Active Substance: PYRIMETHAMINE
     Indication: TOXOPLASMOSIS
     Dosage: 4 TABLETS, ONCE
     Route: 048
     Dates: start: 20190924, end: 20190924
  8. BUSPIRONE [Concomitant]
     Active Substance: BUSPIRONE HYDROCHLORIDE
  9. MELOXICAM. [Concomitant]
     Active Substance: MELOXICAM
  10. OXYCODONE [Concomitant]
     Active Substance: OXYCODONE
  11. LEVOTHYROXINE. [Concomitant]
     Active Substance: LEVOTHYROXINE
  12. LORATADINE. [Concomitant]
     Active Substance: LORATADINE

REACTIONS (13)
  - Dyspnoea at rest [Not Recovered/Not Resolved]
  - Off label use [Recovered/Resolved]
  - Yawning [Not Recovered/Not Resolved]
  - Taste disorder [Not Recovered/Not Resolved]
  - Feeling abnormal [Recovering/Resolving]
  - Chest discomfort [Not Recovered/Not Resolved]
  - Headache [Not Recovered/Not Resolved]
  - Dysphonia [Recovering/Resolving]
  - Malaise [Not Recovered/Not Resolved]
  - Nausea [Not Recovered/Not Resolved]
  - Flatulence [Not Recovered/Not Resolved]
  - Fatigue [Not Recovered/Not Resolved]
  - Eructation [Not Recovered/Not Resolved]

NARRATIVE: CASE EVENT DATE: 201909
